FAERS Safety Report 9636739 (Version 3)
Quarter: 2013Q4

REPORT INFORMATION
  Report Type: Spontaneous
  Country: CH (occurrence: CH)
  Receive Date: 20131022
  Receipt Date: 20131119
  Transmission Date: 20140711
  Serious: Yes (Other)
  Sender: FDA-Public Use
  Company Number: CH-AMGEN-CHESP2013073070

PATIENT
  Age: 84 Year
  Sex: Male
  Weight: 75 kg

DRUGS (3)
  1. XGEVA [Suspect]
     Indication: PROSTATE CANCER
     Dosage: UNK UNK, QMO
     Route: 065
     Dates: start: 20120822, end: 20131010
  2. LUCRIN [Concomitant]
     Dosage: UNK UNK, Q3MO
     Route: 058
     Dates: start: 20120817
  3. CALCIMAGON                         /00751501/ [Concomitant]
     Dosage: UNK
     Dates: start: 20120817

REACTIONS (1)
  - Osteonecrosis of jaw [Not Recovered/Not Resolved]
